FAERS Safety Report 12783161 (Version 1)
Quarter: 2016Q3

REPORT INFORMATION
  Report Type: Spontaneous
  Country: US (occurrence: US)
  Receive Date: 20160927
  Receipt Date: 20160927
  Transmission Date: 20161109
  Serious: Yes (Other)
  Sender: FDA-Public Use
  Company Number: US-BEH-SAGL/01/23/LIT

PATIENT
  Age: 65 Year
  Sex: Female

DRUGS (1)
  1. SANDOGLOBULIN [Suspect]
     Active Substance: HUMAN IMMUNOGLOBULIN G
     Indication: GUILLAIN-BARRE SYNDROME
     Dosage: DAILY DOSE QUANTITY: 400, DAILY DOSE UNIT: MG/KG
     Route: 042

REACTIONS (5)
  - Hyponatraemia [Unknown]
  - Condition aggravated [Unknown]
  - Polyuria [Unknown]
  - Urine osmolarity decreased [Unknown]
  - Blindness cortical [Unknown]
